FAERS Safety Report 9201198 (Version 1)
Quarter: 2013Q2

REPORT INFORMATION
  Report Type: Spontaneous
  Country: BR (occurrence: BR)
  Receive Date: 20130401
  Receipt Date: 20130401
  Transmission Date: 20140414
  Serious: Yes (Other)
  Sender: FDA-Public Use
  Company Number: PHHY2012BR076215

PATIENT
  Sex: Female

DRUGS (4)
  1. DIOVAN [Suspect]
     Dosage: UNK UKN, UNK
  2. DIOVAN HCT [Suspect]
     Indication: BLOOD PRESSURE ABNORMAL
     Dosage: 1 DF (160/12.5 MG), A DAY
     Route: 048
  3. DIOVAN TRIPLE [Suspect]
     Indication: BLOOD PRESSURE ABNORMAL
     Dosage: 2 DF, A DAY
     Route: 048
  4. COUMADINE [Concomitant]
     Dosage: 1 DF(2.5MG), A DAY
     Route: 048
     Dates: start: 2011

REACTIONS (2)
  - Cerebrovascular accident [Unknown]
  - Arrhythmia [Recovering/Resolving]
